FAERS Safety Report 5974257-X (Version None)
Quarter: 2008Q4

REPORT INFORMATION
  Report Type: 
  Country: None (occurrence: None)
  Receive Date: 20081128
  Receipt Date: 20081124
  Transmission Date: 20090506
  Serious: Yes (Other)
  Sender: FDA-Public Use
  Company Number: 1000001269

PATIENT
  Age: 21 Year
  Sex: Female

DRUGS (3)
  1. LEXAPRO [Suspect]
     Indication: DEPRESSION
     Dosage: 10 MG (10 MG, 1 IN 1 D), ORAL
     Route: 048
     Dates: start: 20081001, end: 20081001
  2. SYMBICORT [Concomitant]
  3. PROVENTIL-HFA [Concomitant]

REACTIONS (2)
  - HAEMATEMESIS [None]
  - NAUSEA [None]
